FAERS Safety Report 17712133 (Version 1)
Quarter: 2020Q2

REPORT INFORMATION
  Report Type: Report from Study
  Country: US (occurrence: US)
  Receive Date: 20200427
  Receipt Date: 20200427
  Transmission Date: 20200714
  Serious: No
  Sender: FDA-Public Use
  Company Number: US-CURIUM-201700181

PATIENT
  Age: 48 Year
  Sex: Female

DRUGS (1)
  1. OCTREOSCAN [Suspect]
     Active Substance: INDIUM IN-111 CHLORIDE\INDIUM IN-111 PENTETREOTIDE
     Indication: PHOSPHATURIC MESENCHYMAL TUMOUR
     Dosage: 6 MCI, SINGLE??NUMBER OF SEPARATE DOSAGES: 1
     Route: 042

REACTIONS (1)
  - False positive investigation result [Recovered/Resolved]
